FAERS Safety Report 8839397 (Version 1)
Quarter: 2012Q4

REPORT INFORMATION
  Report Type: Spontaneous
  Country: US (occurrence: None)
  Receive Date: 20121011
  Receipt Date: 20121011
  Transmission Date: 20130627
  Serious: Yes (Hospitalization)
  Sender: FDA-Public Use
  Company Number: None

PATIENT
  Age: 33 Year
  Sex: Female
  Weight: 110 kg

DRUGS (1)
  1. HYDROXYCHLOROQUINE [Suspect]
     Indication: AUTOIMMUNE DISORDER
     Route: 048

REACTIONS (1)
  - Stevens-Johnson syndrome [None]
